FAERS Safety Report 13212949 (Version 1)
Quarter: 2017Q1

REPORT INFORMATION
  Report Type: Spontaneous
  Country: GB (occurrence: GB)
  Receive Date: 20170210
  Receipt Date: 20170210
  Transmission Date: 20170428
  Serious: Yes (Life-Threatening, Other)
  Sender: FDA-Public Use
  Company Number: GB-ABBVIE-17K-167-1867954-00

PATIENT
  Age: 41 Year
  Sex: Female
  Weight: 55.5 kg

DRUGS (1)
  1. HUMIRA [Suspect]
     Active Substance: ADALIMUMAB
     Indication: RHEUMATOID ARTHRITIS
     Route: 058
     Dates: start: 201106

REACTIONS (2)
  - Immunosuppression [Unknown]
  - Squamous cell carcinoma of the cervix [Recovered/Resolved with Sequelae]

NARRATIVE: CASE EVENT DATE: 201610
